FAERS Safety Report 4698557-9 (Version None)
Quarter: 2005Q2

REPORT INFORMATION
  Report Type: 
  Country: None (occurrence: None)
  Receive Date: 20050622
  Receipt Date: 20050607
  Transmission Date: 20051028
  Serious: Yes (Hospitalization)
  Sender: FDA-Public Use
  Company Number: 200504840

PATIENT
  Age: 62 Year
  Sex: Female

DRUGS (3)
  1. BLEPH-10 SOLUTION [Suspect]
     Dates: start: 20050310
  2. LAMICTAL [Suspect]
     Indication: BIPOLAR DISORDER
     Dates: start: 20050101, end: 20050101
  3. KEFLEX [Suspect]
     Dates: start: 20050310

REACTIONS (2)
  - RESPIRATORY DISTRESS [None]
  - STEVENS-JOHNSON SYNDROME [None]
